FAERS Safety Report 15080501 (Version 1)
Quarter: 2018Q2

REPORT INFORMATION
  Report Type: Spontaneous
  Country: US (occurrence: US)
  Receive Date: 20180628
  Receipt Date: 20180628
  Transmission Date: 20180711
  Serious: Yes (Hospitalization)
  Sender: FDA-Public Use
  Company Number: US-ROCHE-2144505

PATIENT
  Sex: Female

DRUGS (1)
  1. ERIVEDGE [Suspect]
     Active Substance: VISMODEGIB
     Indication: BASAL CELL CARCINOMA
     Dosage: DAILY, ONGOING
     Route: 048
     Dates: start: 20171130

REACTIONS (3)
  - Hallucination [Unknown]
  - Dehydration [Unknown]
  - Gastrointestinal disorder [Unknown]
